FAERS Safety Report 9514983 (Version 3)
Quarter: 2013Q4

REPORT INFORMATION
  Report Type: Spontaneous
  Country: JP (occurrence: JP)
  Receive Date: 20130911
  Receipt Date: 20131219
  Transmission Date: 20140711
  Serious: No
  Sender: FDA-Public Use
  Company Number: JP-JNJFOC-20130903350

PATIENT
  Sex: 0

DRUGS (3)
  1. ONEDURO [Suspect]
     Indication: CANCER PAIN
     Dosage: ONE-FOURTH (18.75 MCG/HR)
     Route: 062
  2. ONEDURO [Suspect]
     Indication: CANCER PAIN
     Route: 062
  3. DUROTEP MT [Suspect]
     Indication: CANCER PAIN
     Route: 062

REACTIONS (3)
  - Nausea [Recovered/Resolved]
  - Wrong technique in drug usage process [Unknown]
  - Somnolence [Recovered/Resolved]
